FAERS Safety Report 13426886 (Version 1)
Quarter: 2017Q2

REPORT INFORMATION
  Report Type: Spontaneous
  Country: US (occurrence: US)
  Receive Date: 20170411
  Receipt Date: 20170411
  Transmission Date: 20170830
  Serious: No
  Sender: FDA-Public Use
  Company Number: None

PATIENT

DRUGS (2)
  1. ALCOHOL. [Suspect]
     Active Substance: ALCOHOL
     Route: 061
  2. ADHESIVE TAPE [Suspect]
     Active Substance: ADHESIVE TAPE

REACTIONS (1)
  - Product label confusion [None]
